FAERS Safety Report 10120198 (Version 2)
Quarter: 2014Q2

REPORT INFORMATION
  Report Type: Spontaneous
  Country: JP (occurrence: JP)
  Receive Date: 20140426
  Receipt Date: 20140509
  Transmission Date: 20141212
  Serious: Yes (Death)
  Sender: FDA-Public Use
  Company Number: PHHY2014JP050699

PATIENT
  Age: 73 Year
  Sex: Male

DRUGS (13)
  1. EXELON PATCH [Suspect]
     Indication: DEMENTIA ALZHEIMER^S TYPE
     Dosage: 4.5 MG, DAILY
     Route: 062
     Dates: start: 20140207
  2. HIRUDOID//HEPARINOID [Concomitant]
     Dosage: UNK UKN, UNK
     Dates: start: 20140207
  3. HALCION [Concomitant]
     Dosage: 0.25 MG, UNK
     Route: 048
     Dates: start: 20140203
  4. DEPAS [Concomitant]
     Dosage: 0.5 MG, UNK
     Route: 048
     Dates: start: 20140203
  5. MADOPAR [Concomitant]
     Dosage: UNK UKN, UNK
     Route: 048
     Dates: start: 20140207
  6. WARFARIN POTASSIUM [Concomitant]
     Dosage: 1 MG, UNK
     Route: 048
     Dates: start: 20140203
  7. ALDOMET [Concomitant]
     Dosage: 250 MG, UNK
     Route: 048
     Dates: start: 20140203
  8. CONAN [Concomitant]
     Dosage: 10 MG, UNK
     Route: 048
     Dates: start: 20140203
  9. FLUITRAN [Concomitant]
     Dosage: 2 MG, UNK
     Route: 048
     Dates: start: 20140203
  10. ATELEC [Concomitant]
     Dosage: 5 MG, UNK
     Route: 048
     Dates: start: 20140203
  11. JU-KAMA [Concomitant]
     Dosage: 0.5 MG, UNK
     Route: 048
     Dates: start: 20140203
  12. TSUMURA DAISAIKOTOU [Concomitant]
     Dosage: 0.25 MG, UNK
     Route: 048
     Dates: start: 20140203
  13. TRIAZOLAM [Concomitant]
     Dosage: 1 DF, UNK
     Route: 048
     Dates: start: 20140203

REACTIONS (1)
  - Death [Fatal]
